FAERS Safety Report 15426805 (Version 1)
Quarter: 2018Q3

REPORT INFORMATION
  Report Type: Spontaneous
  Country: US (occurrence: US)
  Receive Date: 20180925
  Receipt Date: 20180925
  Transmission Date: 20181010
  Serious: No
  Sender: FDA-Public Use
  Company Number: US-INDIVIOR LIMITED-INDV-107233-2017

PATIENT
  Age: 64 Year
  Sex: Female

DRUGS (1)
  1. SUBOXONE [Suspect]
     Active Substance: BUPRENORPHINE HYDROCHLORIDE\NALOXONE HYDROCHLORIDE
     Indication: DRUG DEPENDENCE
     Dosage: 8MG, TWO TIMES PER DAY
     Route: 060

REACTIONS (6)
  - Drug intolerance [Unknown]
  - Abdominal discomfort [Unknown]
  - Gallbladder disorder [Unknown]
  - Mental impairment [Unknown]
  - Product use issue [Unknown]
  - Gastric disorder [Unknown]

NARRATIVE: CASE EVENT DATE: 2016
